FAERS Safety Report 4616425-5 (Version None)
Quarter: 2005Q1

REPORT INFORMATION
  Report Type: 
  Country: None (occurrence: None)
  Receive Date: 20050318
  Receipt Date: 20050307
  Transmission Date: 20050727
  Serious: Yes (Hospitalization)
  Sender: FDA-Public Use
  Company Number: 2005042126

PATIENT
  Sex: Female

DRUGS (1)
  1. ZITHROMAX [Suspect]
     Indication: BRONCHITIS
     Dosage: 500 MG (250 MG, UNKNOWN), ORAL
     Route: 048
     Dates: start: 20041007, end: 20041007

REACTIONS (5)
  - DISORIENTATION [None]
  - DIZZINESS [None]
  - EYE DISORDER [None]
  - HYPERSENSITIVITY [None]
  - NIGHTMARE [None]
